FAERS Safety Report 16973129 (Version 4)
Quarter: 2023Q1

REPORT INFORMATION
  Report Type: Report from Study
  Country: CA (occurrence: None)
  Receive Date: 20191030
  Receipt Date: 20230227
  Transmission Date: 20230418
  Serious: Yes (Hospitalization)
  Sender: FDA-Public Use
  Company Number: CA-ORION CORPORATION ORION PHARMA-TREX2019-4806

PATIENT
  Age: 29 Year
  Sex: Male

DRUGS (10)
  1. METHOTREXATE [Suspect]
     Active Substance: METHOTREXATE
     Indication: Product used for unknown indication
     Route: 065
  2. BETAMETHASONE [Suspect]
     Active Substance: BETAMETHASONE
     Indication: Product used for unknown indication
     Route: 065
  3. BETAMETHASONE [Suspect]
     Active Substance: BETAMETHASONE
     Route: 065
  4. CYCLOSPORINE [Suspect]
     Active Substance: CYCLOSPORINE
     Indication: Psoriasis
     Route: 065
  5. COSENTYX [Suspect]
     Active Substance: SECUKINUMAB
     Indication: Psoriasis
     Route: 058
  6. COSENTYX [Suspect]
     Active Substance: SECUKINUMAB
     Route: 058
  7. COSENTYX [Suspect]
     Active Substance: SECUKINUMAB
     Route: 058
  8. COSENTYX [Suspect]
     Active Substance: SECUKINUMAB
     Route: 058
  9. ENBREL [Concomitant]
     Active Substance: ETANERCEPT
     Route: 065
  10. BETADERM [Concomitant]
     Active Substance: BETAMETHASONE VALERATE
     Route: 065

REACTIONS (9)
  - Drug ineffective [Unknown]
  - Off label use [Unknown]
  - Psoriasis [Unknown]
  - Emotional distress [Unknown]
  - Pain of skin [Unknown]
  - Pruritus [Unknown]
  - Self-consciousness [Unknown]
  - Sexual dysfunction [Unknown]
  - Fatigue [Unknown]
